FAERS Safety Report 17360549 (Version 1)
Quarter: 2020Q1

REPORT INFORMATION
  Report Type: Spontaneous
  Country: DE (occurrence: DE)
  Receive Date: 20200203
  Receipt Date: 20200203
  Transmission Date: 20200409
  Serious: Yes (Other)
  Sender: FDA-Public Use
  Company Number: NVSC2020DE021306

PATIENT
  Age: 37 Year
  Sex: Female
  Weight: 67.8 kg

DRUGS (7)
  1. SULFASALAZINE DELAYED-RELEASE [Concomitant]
     Active Substance: SULFASALAZINE
     Indication: PSORIATIC ARTHROPATHY
     Dosage: 2000 [MG/D ]
     Route: 048
     Dates: start: 20180508, end: 20181128
  2. CIMZIA [Concomitant]
     Active Substance: CERTOLIZUMAB PEGOL
     Indication: PSORIATIC ARTHROPATHY
     Dosage: 200 [MG/2WK ]
     Route: 058
     Dates: start: 20181129, end: 20190216
  3. EMSER PASTILLEN [Concomitant]
     Active Substance: ELECTROLYTES NOS
     Indication: NASOPHARYNGITIS
     Dosage: UNK
     Route: 049
     Dates: start: 20181220, end: 20181228
  4. CYTOTEC [Concomitant]
     Active Substance: MISOPROSTOL
     Indication: LABOUR INDUCTION
     Dosage: UNK
     Route: 048
     Dates: start: 20190216, end: 20190216
  5. L-THYROXINE [Concomitant]
     Active Substance: LEVOTHYROXINE
     Indication: THYROID HORMONE REPLACEMENT THERAPY
     Dosage: 225 [?G/D (BIS 150) ]
     Route: 048
     Dates: start: 20180510, end: 20190216
  6. PREDNISOLONE. [Suspect]
     Active Substance: PREDNISOLONE
     Indication: PSORIATIC ARTHROPATHY
     Dosage: 20 [MG/D (BIS 2.5 MG)]
     Route: 048
     Dates: start: 20180919
  7. CETIRIZINE [Concomitant]
     Active Substance: CETIRIZINE HYDROCHLORIDE
     Indication: SEASONAL ALLERGY
     Dosage: 10 [MG/D ]
     Route: 048
     Dates: start: 20180501, end: 20180706

REACTIONS (2)
  - Gestational diabetes [Recovered/Resolved]
  - Exposure during pregnancy [Unknown]
